FAERS Safety Report 7448151-1 (Version None)
Quarter: 2011Q2

REPORT INFORMATION
  Report Type: 
  Country: None (occurrence: None)
  Receive Date: 20110429
  Receipt Date: 20101008
  Transmission Date: 20111010
  Serious: No
  Sender: FDA-Public Use
  Company Number: US-ASTRAZENECA-2007UW01394

PATIENT
  Age: 82 Year
  Sex: Male
  Weight: 77.1 kg

DRUGS (9)
  1. FLOMAX [Concomitant]
  2. BLOOD PRESSURE MEDICATION [Concomitant]
  3. PAXIL CR [Concomitant]
  4. ARTHROTEC [Concomitant]
     Dosage: 50/2
  5. NEXIUM [Suspect]
     Indication: DYSPEPSIA
     Route: 048
     Dates: start: 20101003
  6. ASPIRIN [Concomitant]
     Dosage: 81 MG 2 TAB
  7. ACCUVITE MVI [Concomitant]
  8. LIPITOR [Concomitant]
  9. DIOVAN [Concomitant]

REACTIONS (3)
  - BREATH ODOUR [None]
  - DRUG INEFFECTIVE [None]
  - DRY MOUTH [None]
